FAERS Safety Report 4987820-X (Version None)
Quarter: 2006Q2

REPORT INFORMATION
  Report Type: 
  Country: None (occurrence: None)
  Receive Date: 20060427
  Receipt Date: 20060427
  Transmission Date: 20061013
  Serious: Yes (Death)
  Sender: FDA-Public Use
  Company Number: None

PATIENT
  Sex: Male

DRUGS (2)
  1. EFFEXOR EX      150 MG CAPS         ? [Suspect]
     Indication: DEPRESSION
     Dosage: 2     DAILY    PO 1 + YEAR
     Route: 048
     Dates: start: 20040101, end: 20050121
  2. OXYCODONE     5 MG + 20 MG        ? [Suspect]
     Indication: PAIN
     Dosage: PO  1 + YEAR
     Route: 048
     Dates: start: 20040101, end: 20050121

REACTIONS (1)
  - COMPLETED SUICIDE [None]
